FAERS Safety Report 8266379-8 (Version None)
Quarter: 2012Q2

REPORT INFORMATION
  Report Type: 
  Country: None (occurrence: None)
  Receive Date: 20120406
  Receipt Date: 20120327
  Transmission Date: 20120825
  Serious: Yes (Life-Threatening, Hospitalization)
  Sender: FDA-Public Use
  Company Number: AU-ROCHE-1050724

PATIENT
  Sex: Male

DRUGS (2)
  1. PEGASYS [Suspect]
     Indication: PRODUCT USED FOR UNKNOWN INDICATION
     Route: 058
     Dates: start: 20111121, end: 20120315
  2. RIBAVIRIN [Suspect]
     Indication: PRODUCT USED FOR UNKNOWN INDICATION
     Route: 048
     Dates: start: 20111121, end: 20120315

REACTIONS (7)
  - ARRHYTHMIA [None]
  - HYPERTHYROIDISM [None]
  - RENAL FAILURE ACUTE [None]
  - POLYURIA [None]
  - POLYDIPSIA [None]
  - DIABETIC KETOACIDOSIS [None]
  - NAUSEA [None]
